FAERS Safety Report 6191610-2 (Version None)
Quarter: 2009Q2

REPORT INFORMATION
  Report Type: 
  Country: None (occurrence: None)
  Receive Date: 20090515
  Receipt Date: 20090507
  Transmission Date: 20091009
  Serious: Yes (Other)
  Sender: FDA-Public Use
  Company Number: PHHY2009MX17765

PATIENT
  Sex: Female

DRUGS (2)
  1. ACLASTA [Suspect]
     Indication: OSTEOPOROSIS
     Dosage: 5MG/100 ML
     Dates: start: 20090504
  2. EUTIROX [Concomitant]
     Indication: HYPOTHYROIDISM
     Dosage: 100MG PER DAY

REACTIONS (2)
  - GALACTORRHOEA [None]
  - HORMONE LEVEL ABNORMAL [None]
